FAERS Safety Report 21083707 (Version 1)
Quarter: 2022Q3

REPORT INFORMATION
  Report Type: Spontaneous
  Country: US (occurrence: US)
  Receive Date: 20220714
  Receipt Date: 20220714
  Transmission Date: 20221027
  Serious: No
  Sender: FDA-Public Use
  Company Number: US-JAZZ-2022-US-012192

PATIENT
  Sex: Male

DRUGS (1)
  1. EPIDIOLEX [Suspect]
     Active Substance: CANNABIDIOL
     Indication: Epilepsy
     Dosage: TAKE 0.5 ML BY MOUTH TWO TIMES DAILY FOR 7 DAYS, THEN 1 ML TWO TIMES DAILY
     Route: 048
     Dates: start: 202203

REACTIONS (1)
  - Drug hypersensitivity [Unknown]
